FAERS Safety Report 18915923 (Version 4)
Quarter: 2021Q3

REPORT INFORMATION
  Report Type: Report from Study
  Country: US (occurrence: US)
  Receive Date: 20210219
  Receipt Date: 20210812
  Transmission Date: 20211014
  Serious: Yes (Hospitalization)
  Sender: FDA-Public Use
  Company Number: US-PFIZER INC-2021168568

PATIENT
  Age: 16 Year
  Sex: Male
  Weight: 78.1 kg

DRUGS (7)
  1. VINCRISTINE SULFATE. [Suspect]
     Active Substance: VINCRISTINE SULFATE
     Indication: ACUTE LYMPHOCYTIC LEUKAEMIA
     Dosage: 2 MG, CYCLIC (4 DAYS OF COURSE 15,22,43,50) (REGIMEN #1)
     Route: 042
     Dates: start: 20201207
  2. CYTARABINE. [Suspect]
     Active Substance: CYTARABINE
     Indication: ACUTE LYMPHOCYTIC LEUKAEMIA
     Dosage: 150 MG, CYCLIC (16 DAYS OF COURSE 1?4, 8?11, 29?32 AND 36?39)
     Route: 042
     Dates: start: 20201121
  3. METHOTREXATE SODIUM. [Suspect]
     Active Substance: METHOTREXATE SODIUM
     Indication: ACUTE LYMPHOCYTIC LEUKAEMIA
     Dosage: 15 MG, TABLET
     Route: 037
     Dates: start: 20201120
  4. INCB018424 [Suspect]
     Active Substance: RUXOLITINIB
     Indication: ACUTE LYMPHOCYTIC LEUKAEMIA
     Dosage: 95 MG, 2X/DAY (14 DAYS ON/14 DAYS OFF), TABLET
     Route: 048
     Dates: start: 20201121
  5. PEGASPARGASE [Suspect]
     Active Substance: PEGASPARGASE
     Indication: ACUTE LYMPHOCYTIC LEUKAEMIA
     Dosage: 3750 IU
     Route: 042
     Dates: start: 20201207
  6. MERCAPTOPURINE. [Suspect]
     Active Substance: MERCAPTOPURINE
     Indication: ACUTE LYMPHOCYTIC LEUKAEMIA
     Dosage: 103.6 MG, CYCLIC (28 DAYS OF COURSE 1?14 AND 29?42), TABLET
     Route: 048
     Dates: start: 20201121
  7. CYCLOPHOSPHAMIDE. [Suspect]
     Active Substance: CYCLOPHOSPHAMIDE
     Indication: ACUTE LYMPHOCYTIC LEUKAEMIA
     Dosage: 2000 MG (2 DAYS OF COURSE 1 AND 29)
     Route: 042
     Dates: start: 20201121

REACTIONS (1)
  - Febrile neutropenia [Recovered/Resolved]

NARRATIVE: CASE EVENT DATE: 20210119
